FAERS Safety Report 5637900-0 (Version None)
Quarter: 2008Q1

REPORT INFORMATION
  Report Type: 
  Country: None (occurrence: None)
  Receive Date: 20080221
  Receipt Date: 20080214
  Transmission Date: 20080703
  Serious: Yes (Hospitalization, Other)
  Sender: FDA-Public Use
  Company Number: 2008BI002567

PATIENT
  Age: 57 Year
  Sex: Male

DRUGS (1)
  1. AVONEX [Suspect]
     Indication: MULTIPLE SCLEROSIS
     Dosage: 30 UG; ; IM
     Route: 030
     Dates: start: 19960801, end: 20080211

REACTIONS (5)
  - CONDITION AGGRAVATED [None]
  - HIP ARTHROPLASTY [None]
  - ILL-DEFINED DISORDER [None]
  - MENINGIOMA [None]
  - MULTIPLE SCLEROSIS [None]
